FAERS Safety Report 18407229 (Version 1)
Quarter: 2020Q4

REPORT INFORMATION
  Report Type: Report from Study
  Country: US (occurrence: US)
  Receive Date: 20201020
  Receipt Date: 20201020
  Transmission Date: 20210114
  Serious: Yes (Other)
  Sender: FDA-Public Use
  Company Number: NVSC2020US277524

PATIENT
  Age: 45 Year
  Sex: Male

DRUGS (1)
  1. GLEEVEC [Suspect]
     Active Substance: IMATINIB MESYLATE
     Indication: CHRONIC MYELOID LEUKAEMIA
     Dosage: 400 MG, QD
     Route: 048
     Dates: start: 2000, end: 2000

REACTIONS (4)
  - Chronic myeloid leukaemia [Unknown]
  - Drug resistance [Recovered/Resolved]
  - Malignant neoplasm progression [Unknown]
  - Cytogenetic analysis abnormal [Recovered/Resolved]

NARRATIVE: CASE EVENT DATE: 2000
